FAERS Safety Report 23790147 (Version 1)
Quarter: 2024Q2

REPORT INFORMATION
  Report Type: Spontaneous
  Country: CH (occurrence: CH)
  Receive Date: 20240426
  Receipt Date: 20240426
  Transmission Date: 20240716
  Serious: Yes (Hospitalization, Other)
  Sender: FDA-Public Use
  Company Number: CH-BRISTOL-MYERS SQUIBB COMPANY-2024-061574

PATIENT
  Sex: Male

DRUGS (1)
  1. ABECMA [Suspect]
     Active Substance: IDECABTAGENE VICLEUCEL
     Indication: Plasma cell myeloma
     Dosage: DOSE : UNAV.;     FREQ : UNAV.

REACTIONS (8)
  - General physical health deterioration [Recovering/Resolving]
  - Mental impairment [Recovering/Resolving]
  - Urinary incontinence [Recovering/Resolving]
  - Dysstasia [Recovering/Resolving]
  - Full blood count decreased [Recovering/Resolving]
  - Cachexia [Recovering/Resolving]
  - Anal incontinence [Recovering/Resolving]
  - Platelet count decreased [Recovering/Resolving]
